FAERS Safety Report 9334677 (Version 1)
Quarter: 2013Q2

REPORT INFORMATION
  Report Type: Spontaneous
  Country: US (occurrence: US)
  Receive Date: 20130606
  Receipt Date: 20130606
  Transmission Date: 20140414
  Serious: No
  Sender: FDA-Public Use
  Company Number: US-AMGEN-USASP2013018401

PATIENT
  Age: 60 Year
  Sex: Female

DRUGS (8)
  1. PROLIA [Suspect]
     Indication: OSTEOPOROSIS POSTMENOPAUSAL
     Dosage: 60 MG, UNK
     Dates: start: 20130221
  2. COZAAR [Concomitant]
  3. SIMVASTATIN [Concomitant]
  4. BABY ASPIRIN [Concomitant]
  5. FISH OIL [Concomitant]
     Dosage: 2400 MG, QD
  6. CALCIUM WITH VITAMIN D             /00944201/ [Concomitant]
     Dosage: 1200 MG, UNK
  7. VITAMIN D                          /00107901/ [Concomitant]
     Dosage: 8000 IU, QD
  8. CALCIUM [Concomitant]

REACTIONS (1)
  - Back pain [Unknown]
